FAERS Safety Report 8484126-1 (Version None)
Quarter: 2012Q3

REPORT INFORMATION
  Report Type: 
  Country: None (occurrence: None)
  Receive Date: 20120703
  Receipt Date: 20120621
  Transmission Date: 20120928
  Serious: Yes (Hospitalization)
  Sender: FDA-Public Use
  Company Number: JP-VERTEX PHARMACEUTICALS INC.-AE-2012-004265

PATIENT
  Age: 50 Year
  Sex: Male

DRUGS (6)
  1. TELAVIC (TELAPREVIR) [Suspect]
     Indication: HEPATITIS C
     Route: 048
     Dates: start: 20120203, end: 20120306
  2. TELAVIC (TELAPREVIR) [Suspect]
     Route: 048
     Dates: start: 20120307, end: 20120426
  3. RIBAVIRIN [Concomitant]
     Route: 048
     Dates: start: 20120314
  4. PEG-INTRON [Concomitant]
     Indication: HEPATITIS C
     Route: 058
     Dates: start: 20120203
  5. RIBAVIRIN [Concomitant]
     Indication: HEPATITIS C
     Route: 048
     Dates: start: 20120203, end: 20120307
  6. RIBAVIRIN [Concomitant]
     Route: 048
     Dates: start: 20120308, end: 20120313

REACTIONS (2)
  - MALAISE [None]
  - ABDOMINAL DISCOMFORT [None]
